FAERS Safety Report 9944441 (Version 2)
Quarter: 2015Q1

REPORT INFORMATION
  Report Type: Report from Study
  Country: US (occurrence: US)
  Receive Date: 20140303
  Receipt Date: 20150216
  Transmission Date: 20150721
  Serious: Yes (Other)
  Sender: FDA-Public Use
  Company Number: US-ABBVIE-13P-163-1053745-00

PATIENT
  Age: 44 Year
  Sex: Male
  Weight: 66.74 kg

DRUGS (12)
  1. HUMIRA [Suspect]
     Active Substance: ADALIMUMAB
     Dates: start: 201211
  2. 6 MP [Suspect]
     Active Substance: MERCAPTOPURINE
     Indication: CROHN^S DISEASE
     Dates: end: 201301
  3. PROBIOTIC [Concomitant]
     Active Substance: PROBIOTICS NOS
     Indication: SUPPLEMENTATION THERAPY
  4. ASACOL [Concomitant]
     Active Substance: MESALAMINE
     Indication: CROHN^S DISEASE
  5. 6 MP [Suspect]
     Active Substance: MERCAPTOPURINE
     Dates: start: 201301
  6. MVI [Concomitant]
     Active Substance: VITAMINS
     Indication: SUPPLEMENTATION THERAPY
  7. HUMIRA [Suspect]
     Active Substance: ADALIMUMAB
     Indication: CROHN^S DISEASE
     Dates: start: 201210, end: 201210
  8. HUMIRA [Suspect]
     Active Substance: ADALIMUMAB
     Dates: start: 201212
  9. LOSARTAN [Concomitant]
     Active Substance: LOSARTAN
     Indication: HYPERTENSION
     Dosage: ONCE DAILY
  10. 6 MP [Suspect]
     Active Substance: MERCAPTOPURINE
     Dates: start: 201301, end: 201301
  11. SIMVASTATIN. [Concomitant]
     Active Substance: SIMVASTATIN
     Indication: BLOOD CHOLESTEROL INCREASED
     Dosage: DAILY
  12. HUMIRA [Suspect]
     Active Substance: ADALIMUMAB
     Dates: start: 201211, end: 201211

REACTIONS (6)
  - Acne [Not Recovered/Not Resolved]
  - Drug ineffective [Recovered/Resolved]
  - Rectal haemorrhage [Recovered/Resolved]
  - Pustular psoriasis [Not Recovered/Not Resolved]
  - Injury [Unknown]
  - Rash macular [Not Recovered/Not Resolved]

NARRATIVE: CASE EVENT DATE: 201210
